FAERS Safety Report 10194010 (Version 1)
Quarter: 2014Q2

REPORT INFORMATION
  Report Type: Spontaneous
  Country: US (occurrence: US)
  Receive Date: 20140524
  Receipt Date: 20140524
  Transmission Date: 20141212
  Serious: No
  Sender: FDA-Public Use
  Company Number: US-SANOFI-AVENTIS-2013SA051270

PATIENT
  Age: 85 Year
  Sex: Female

DRUGS (6)
  1. LANTUS SOLOSTAR [Suspect]
     Indication: TYPE 2 DIABETES MELLITUS
     Dosage: DOSE:35 UNIT(S)
     Route: 051
  2. LANTUS SOLOSTAR [Suspect]
     Indication: TYPE 2 DIABETES MELLITUS
  3. SOLOSTAR [Suspect]
     Indication: TYPE 2 DIABETES MELLITUS
  4. SOLOSTAR [Suspect]
     Indication: TYPE 2 DIABETES MELLITUS
  5. LANTUS [Suspect]
     Indication: DIABETES MELLITUS
     Dosage: DOSE:40 UNIT(S)
     Route: 051
  6. ALL OTHER THERAPEUTIC PRODUCTS [Suspect]

REACTIONS (11)
  - Musculoskeletal stiffness [Unknown]
  - Headache [Unknown]
  - Skin fragility [Unknown]
  - Injection site discolouration [Unknown]
  - Injection site haemorrhage [Not Recovered/Not Resolved]
  - Injection site bruising [Unknown]
  - Weight increased [Unknown]
  - Blood glucose abnormal [Unknown]
  - Injection site pain [Not Recovered/Not Resolved]
  - Hypoglycaemia [Unknown]
  - Injection site pain [Not Recovered/Not Resolved]
